FAERS Safety Report 5860732-5 (Version None)
Quarter: 2008Q3

REPORT INFORMATION
  Report Type: 
  Country: None (occurrence: None)
  Receive Date: 20080827
  Receipt Date: 20080122
  Transmission Date: 20090109
  Serious: No
  Sender: FDA-Public Use
  Company Number: US-ABBOTT-07P-163-0427637-00

PATIENT
  Sex: Female
  Weight: 72.186 kg

DRUGS (6)
  1. NIASPAN [Suspect]
     Indication: BLOOD CHOLESTEROL INCREASED
     Dosage: WHITE
     Route: 048
     Dates: start: 20070901, end: 20071203
  2. NIASPAN [Suspect]
     Dosage: ORANGE
     Route: 048
     Dates: end: 20070901
  3. ACETYLSALICYLIC ACID SRT [Concomitant]
     Indication: DRUG USE FOR UNKNOWN INDICATION
  4. PRAVASTATIN SODIUM [Concomitant]
     Indication: BLOOD CHOLESTEROL INCREASED
     Dates: start: 20071205
  5. METOPROLOL SUCCINATE [Concomitant]
     Indication: BLOOD PRESSURE
  6. LEVOTHYROXINE SODIUM [Concomitant]
     Indication: DRUG USE FOR UNKNOWN INDICATION

REACTIONS (4)
  - ABNORMAL SENSATION IN EYE [None]
  - DIPLOPIA [None]
  - EYE IRRITATION [None]
  - FATIGUE [None]
